FAERS Safety Report 25484927 (Version 1)
Quarter: 2025Q2

REPORT INFORMATION
  Report Type: Spontaneous
  Country: US (occurrence: US)
  Receive Date: 20250626
  Receipt Date: 20250626
  Transmission Date: 20250717
  Serious: Yes (Disabling, Other)
  Sender: NOVARTIS
  Company Number: US-002147023-NVSC2025US099523

PATIENT
  Age: 54 Year

DRUGS (2)
  1. GLEEVEC [Suspect]
     Active Substance: IMATINIB MESYLATE
     Indication: Chronic myeloid leukaemia
     Route: 065
  2. TASIGNA [Suspect]
     Active Substance: NILOTINIB
     Indication: Chronic myeloid leukaemia
     Route: 065

REACTIONS (4)
  - Cerebrovascular accident [Unknown]
  - Musculoskeletal disorder [Unknown]
  - Speech disorder [Unknown]
  - Hepatic function abnormal [Unknown]
